FAERS Safety Report 6700976-3 (Version None)
Quarter: 2010Q2

REPORT INFORMATION
  Report Type: 
  Country: None (occurrence: None)
  Receive Date: 20100428
  Receipt Date: 20100421
  Transmission Date: 20101027
  Serious: Yes (Hospitalization, Disabling)
  Sender: FDA-Public Use
  Company Number: DE-SANOFI-AVENTIS-200911684DE

PATIENT
  Age: 72 Year
  Sex: Male
  Weight: 94 kg

DRUGS (7)
  1. INSULIN GLARGINE [Suspect]
     Indication: INSULIN-REQUIRING TYPE 2 DIABETES MELLITUS
     Dosage: 2X22-36 IU DAILY
     Route: 058
     Dates: start: 20000101
  2. DELIX [Concomitant]
     Dosage: DOSE AS USED: 1 TABLET IN THE MORNING
     Route: 048
  3. NEXIUM /UNK/ [Concomitant]
     Indication: DRUG USE FOR UNKNOWN INDICATION
     Dosage: DOSE AS USED: 1 TABLET IN THE MORNING
     Route: 048
  4. PK-MERZ [Concomitant]
     Indication: PARKINSON'S DISEASE
     Dosage: DOSE AS USED: 1 TABLET IN THE MORNING, 1 TABLET AT AFTERNOON
     Route: 048
  5. CARBIDOPA-LEVODOPA [Concomitant]
     Indication: PARKINSON'S DISEASE
     Dosage: DOSE AS USED: 1 TABLET IN THE MORNING, 1 TABLET AT AFTERNOON
     Route: 048
  6. CABERGOLINE [Concomitant]
     Indication: PARKINSON'S DISEASE
     Route: 065
  7. GLIMEPIRIDE [Concomitant]
     Indication: INSULIN-REQUIRING TYPE 2 DIABETES MELLITUS
     Route: 065

REACTIONS (1)
  - COLORECTAL CANCER [None]
